FAERS Safety Report 16243536 (Version 1)
Quarter: 2019Q2

REPORT INFORMATION
  Report Type: Spontaneous
  Country: US (occurrence: US)
  Receive Date: 20190325
  Receipt Date: 20190325
  Transmission Date: 20190711
  Serious: No
  Sender: FDA-Public Use
  Company Number: None

PATIENT
  Age: 77 Year
  Sex: Male

DRUGS (4)
  1. TAFINLAR [Concomitant]
     Active Substance: DABRAFENIB MESYLATE
  2. LISINOPRIL. [Concomitant]
     Active Substance: LISINOPRIL
  3. COREG [Concomitant]
     Active Substance: CARVEDILOL
  4. TAFINLAR [Suspect]
     Active Substance: DABRAFENIB MESYLATE
     Dates: start: 20190208

REACTIONS (3)
  - Nausea [None]
  - Decreased appetite [None]
  - Headache [None]

NARRATIVE: CASE EVENT DATE: 20190325
